FAERS Safety Report 5761417-6 (Version None)
Quarter: 2008Q2

REPORT INFORMATION
  Report Type: 
  Country: None (occurrence: None)
  Receive Date: 20080606
  Receipt Date: 20080526
  Transmission Date: 20081010
  Serious: Yes (Life-Threatening, Hospitalization)
  Sender: FDA-Public Use
  Company Number: FR-BAXTER-2008BH005519

PATIENT
  Age: 41 Year
  Sex: Male

DRUGS (9)
  1. SUPRANE [Suspect]
     Indication: GENERAL ANAESTHESIA
     Dosage: DOSE UNIT:UNKNOWN
     Route: 055
     Dates: start: 20080411, end: 20080411
  2. PROPOFOL [Suspect]
     Indication: GENERAL ANAESTHESIA
     Route: 042
     Dates: start: 20080411, end: 20080411
  3. SUFENTANIL CITRATE [Suspect]
     Indication: GENERAL ANAESTHESIA
     Route: 042
     Dates: start: 20080411, end: 20080411
  4. SUFENTANIL CITRATE [Suspect]
     Route: 042
     Dates: start: 20080411, end: 20080411
  5. SUFENTANIL CITRATE [Suspect]
     Route: 042
     Dates: start: 20080411, end: 20080411
  6. SUFENTANIL CITRATE [Suspect]
     Route: 042
     Dates: start: 20080411, end: 20080411
  7. SUFENTANIL CITRATE [Suspect]
     Route: 042
     Dates: start: 20080411, end: 20080411
  8. NIMBEX [Suspect]
     Indication: GENERAL ANAESTHESIA
     Route: 042
     Dates: start: 20080411, end: 20080411
  9. KEFANDOL [Suspect]
     Indication: INFECTION PROPHYLAXIS
     Route: 042
     Dates: start: 20080411, end: 20080411

REACTIONS (3)
  - BRONCHOSPASM [None]
  - CIRCULATORY COLLAPSE [None]
  - HAEMODYNAMIC INSTABILITY [None]
